FAERS Safety Report 20880640 (Version 1)
Quarter: 2022Q2

REPORT INFORMATION
  Report Type: Spontaneous
  Country: CN (occurrence: CN)
  Receive Date: 20220526
  Receipt Date: 20220526
  Transmission Date: 20220721
  Serious: Yes (Other)
  Sender: FDA-Public Use
  Company Number: CN-009507513-2205CHN006687

PATIENT
  Age: 36 Year
  Sex: Female

DRUGS (1)
  1. CILASTATIN SODIUM\IMIPENEM [Suspect]
     Active Substance: CILASTATIN SODIUM\IMIPENEM
     Indication: Infection
     Dosage: 1 G, Q8H, IV DRIP
     Route: 041
     Dates: start: 20220411, end: 20220509

REACTIONS (5)
  - Epilepsy [Recovering/Resolving]
  - Urinary retention [Unknown]
  - Generalised tonic-clonic seizure [Unknown]
  - Generalised tonic-clonic seizure [Unknown]
  - Mental disorder [Unknown]

NARRATIVE: CASE EVENT DATE: 20220501
